FAERS Safety Report 23814937 (Version 2)
Quarter: 2024Q2

REPORT INFORMATION
  Report Type: Report from Study
  Country: US (occurrence: US)
  Receive Date: 20240503
  Receipt Date: 20240609
  Transmission Date: 20240716
  Serious: No
  Sender: FDA-Public Use
  Company Number: US-AstraZeneca-CH-00614777A

PATIENT
  Age: 42 Year
  Sex: Female

DRUGS (1)
  1. STRENSIQ [Suspect]
     Active Substance: ASFOTASE ALFA
     Indication: Product used for unknown indication
     Dosage: UNK
     Route: 065

REACTIONS (6)
  - Acne [Unknown]
  - Skin burning sensation [Unknown]
  - Dry skin [Unknown]
  - Skin exfoliation [Unknown]
  - Erythema [Unknown]
  - Rash [Unknown]

NARRATIVE: CASE EVENT DATE: 20240421
